FAERS Safety Report 11547818 (Version 2)
Quarter: 2015Q4

REPORT INFORMATION
  Report Type: Spontaneous
  Country: US (occurrence: None)
  Receive Date: 20150924
  Receipt Date: 20151110
  Transmission Date: 20160304
  Serious: No
  Sender: FDA-Public Use
  Company Number: US-MDT-ADR-2015-01841

PATIENT
  Age: 49 Year
  Sex: Male

DRUGS (2)
  1. MORPHINE INTRATHECAL [Suspect]
     Active Substance: MORPHINE
     Indication: PAIN
  2. BACLOFEN INTRATHECAL [Suspect]
     Active Substance: BACLOFEN
     Indication: PAIN

REACTIONS (9)
  - Dizziness [None]
  - Bone erosion [None]
  - Chest injury [None]
  - X-ray abnormal [None]
  - Arthralgia [None]
  - Pain [None]
  - Musculoskeletal chest pain [None]
  - Medical device site pain [None]
  - No therapeutic response [None]
